FAERS Safety Report 15866298 (Version 7)
Quarter: 2021Q1

REPORT INFORMATION
  Report Type: Spontaneous
  Country: US (occurrence: US)
  Receive Date: 20190125
  Receipt Date: 20210107
  Transmission Date: 20210419
  Serious: No
  Sender: FDA-Public Use
  Company Number: US-PFIZER INC-2019034665

PATIENT
  Age: 84 Year
  Sex: Female

DRUGS (3)
  1. EUCRISA [Suspect]
     Active Substance: CRISABOROLE
     Indication: DERMATITIS ATOPIC
     Dosage: UNK, 2X/DAY (USE ON BODY MORNING + EVENING)
     Route: 061
     Dates: start: 201803
  2. EUCRISA [Suspect]
     Active Substance: CRISABOROLE
     Dosage: UNK , 2X/DAY (APPLY TO AFFECTED AREAS TWICE DAILY)
  3. EUCRISA [Suspect]
     Active Substance: CRISABOROLE
     Indication: PRURITUS
     Dosage: UNK, 2X/DAY (APPLY TOPICALLY A THIN LAYER TO AFFECTED AREAS ON TRUNK, UPPER AND LOWER EXTREMITIES)
     Route: 061
     Dates: start: 201810

REACTIONS (5)
  - Sneezing [Unknown]
  - Thyroid disorder [Unknown]
  - Skin haemorrhage [Not Recovered/Not Resolved]
  - Drug ineffective [Recovering/Resolving]
  - Multiple allergies [Unknown]

NARRATIVE: CASE EVENT DATE: 201803
